FAERS Safety Report 5950350-2 (Version None)
Quarter: 2008Q4

REPORT INFORMATION
  Report Type: 
  Country: None (occurrence: None)
  Receive Date: 20081112
  Receipt Date: 20081104
  Transmission Date: 20090506
  Serious: Yes (Other)
  Sender: FDA-Public Use
  Company Number: PHEH2008US06997

PATIENT
  Sex: Female
  Weight: 69.841 kg

DRUGS (11)
  1. RECLAST [Suspect]
     Indication: OSTEOPOROSIS
     Dosage: 5 MG, ONCE/SINGLE
     Route: 042
     Dates: start: 20080807, end: 20080807
  2. CALCIUM WITH VITAMIN D [Concomitant]
     Dosage: CALCIUM 600 MG/VITAMIN D 400 IU
  3. SIMVASTATIN [Concomitant]
     Indication: BLOOD CHOLESTEROL INCREASED
  4. TRIAMTERENE AND HYDROCHLOROTHIAZID ^HARRIS^ [Concomitant]
     Indication: HYPERTENSION
     Dosage: 37/25 QD
     Route: 048
  5. OMEPRAZOLE [Concomitant]
     Indication: DYSPEPSIA
     Dosage: 20 MG, QD
     Route: 048
  6. METOPROLOL TARTRATE [Concomitant]
     Indication: HYPERTENSION
  7. ASPIRIN [Concomitant]
     Dosage: 81 MG, QD
     Route: 048
  8. SENNA [Concomitant]
     Indication: CONSTIPATION
  9. TYLENOL [Concomitant]
     Indication: ARTHRITIS
  10. ZOCOR [Concomitant]
     Dosage: 40 MG, QD
     Route: 048
  11. TOPROL-XL [Concomitant]
     Dosage: 50 MG, QD

REACTIONS (14)
  - ARTHRALGIA [None]
  - ASTHENIA [None]
  - BONE PAIN [None]
  - CHILLS [None]
  - COUGH [None]
  - FATIGUE [None]
  - HALLUCINATION [None]
  - LYMPHADENOPATHY [None]
  - NAUSEA [None]
  - OROPHARYNGEAL PAIN [None]
  - PAIN IN JAW [None]
  - PYREXIA [None]
  - TOOTHACHE [None]
  - VOMITING [None]
